FAERS Safety Report 9419348 (Version 1)
Quarter: 2013Q3

REPORT INFORMATION
  Report Type: Spontaneous
  Country: US (occurrence: US)
  Receive Date: 20130725
  Receipt Date: 20130725
  Transmission Date: 20140515
  Serious: No
  Sender: FDA-Public Use
  Company Number: US-GLAXOSMITHKLINE-A1018409A

PATIENT
  Age: 33 Year
  Sex: Female

DRUGS (3)
  1. LAMICTAL [Suspect]
     Indication: MOOD ALTERED
     Dosage: 100MG PER DAY
     Route: 048
     Dates: start: 201302
  2. WELLBUTRIN [Suspect]
     Indication: MOOD ALTERED
     Dosage: 150MG PER DAY
     Route: 048
     Dates: start: 201302
  3. NO CONCURRENT MEDICATION [Concomitant]

REACTIONS (1)
  - Drug screen false positive [Unknown]
